FAERS Safety Report 10473120 (Version 3)
Quarter: 2019Q2

REPORT INFORMATION
  Report Type: Report from Study
  Country: US (occurrence: US)
  Receive Date: 20140924
  Receipt Date: 20190410
  Transmission Date: 20190711
  Serious: Yes (Hospitalization, Other)
  Sender: FDA-Public Use
  Company Number: US-SA-2014SA119265

PATIENT
  Age: 77 Year
  Sex: Female

DRUGS (1)
  1. TERIFLUNOMIDE. [Suspect]
     Active Substance: TERIFLUNOMIDE
     Indication: MULTIPLE SCLEROSIS
     Dosage: 14 MG,QD
     Route: 048
     Dates: start: 20140228

REACTIONS (12)
  - Skin disorder [Not Recovered/Not Resolved]
  - Skin atrophy [Not Recovered/Not Resolved]
  - Fatigue [Unknown]
  - Unevaluable event [Not Recovered/Not Resolved]
  - Asthenia [Unknown]
  - Hospitalisation [Unknown]
  - Madarosis [Not Recovered/Not Resolved]
  - Urinary tract infection [Unknown]
  - Impaired healing [Not Recovered/Not Resolved]
  - Pruritus [Unknown]
  - Skin mass [Not Recovered/Not Resolved]
  - Alopecia [Not Recovered/Not Resolved]

NARRATIVE: CASE EVENT DATE: 2014
